FAERS Safety Report 26023994 (Version 2)
Quarter: 2025Q4

REPORT INFORMATION
  Report Type: Spontaneous
  Country: US (occurrence: US)
  Receive Date: 20251111
  Receipt Date: 20251114
  Transmission Date: 20260119
  Serious: Yes (Other)
  Sender: ABBVIE
  Company Number: US-ABBVIE-6538045

PATIENT
  Age: 75 Year
  Sex: Female

DRUGS (2)
  1. LINZESS [Suspect]
     Active Substance: LINACLOTIDE
     Indication: Constipation
     Dosage: FORM STRENGTH: 72 MICROGRAM
     Route: 048
     Dates: start: 20251101, end: 20251105
  2. LINZESS [Suspect]
     Active Substance: LINACLOTIDE
     Indication: Constipation
     Route: 048

REACTIONS (11)
  - Metabolic surgery [Unknown]
  - Diabetes mellitus [Unknown]
  - Malaise [Unknown]
  - Mass [Unknown]
  - Constipation [Unknown]
  - Gastrointestinal sounds abnormal [Unknown]
  - Presyncope [Unknown]
  - Impaired gastric emptying [Unknown]
  - Pain [Recovered/Resolved]
  - Abdominal distension [Recovered/Resolved]
  - Diarrhoea [Unknown]

NARRATIVE: CASE EVENT DATE: 20250101
